FAERS Safety Report 13560839 (Version 1)
Quarter: 2017Q2

REPORT INFORMATION
  Report Type: Spontaneous
  Country: US (occurrence: US)
  Receive Date: 20170518
  Receipt Date: 20170518
  Transmission Date: 20170830
  Serious: No
  Sender: FDA-Public Use
  Company Number: US-AMGEN-USASP2017073304

PATIENT
  Age: 69 Year
  Sex: Male

DRUGS (5)
  1. GEMFIBROZIL. [Concomitant]
     Active Substance: GEMFIBROZIL
     Dosage: UNK, BID
  2. LITHIUM. [Concomitant]
     Active Substance: LITHIUM
     Dosage: UNK, QHS
  3. ENBREL [Suspect]
     Active Substance: ETANERCEPT
     Indication: PSORIASIS
     Dosage: 50 MG, 2 TIMES/WK
     Route: 065
     Dates: start: 20170328, end: 2017
  4. ENBREL [Suspect]
     Active Substance: ETANERCEPT
     Dosage: 50 MG, 2 TIMES/WK
     Route: 065
     Dates: start: 2017
  5. METOPROLOL. [Concomitant]
     Active Substance: METOPROLOL
     Dosage: UNK, QD

REACTIONS (4)
  - Thirst [Unknown]
  - Drug dose omission [Unknown]
  - Accidental exposure to product [Unknown]
  - Injection site pain [Unknown]

NARRATIVE: CASE EVENT DATE: 2017
